FAERS Safety Report 9807966 (Version 2)
Quarter: 2014Q2

REPORT INFORMATION
  Report Type: Spontaneous
  Country: CL (occurrence: CL)
  Receive Date: 20140110
  Receipt Date: 20140521
  Transmission Date: 20141212
  Serious: Yes (Other)
  Sender: FDA-Public Use
  Company Number: CL-PFIZER INC-2014007592

PATIENT
  Age: 29 Year
  Sex: Female

DRUGS (5)
  1. ZELDOX [Suspect]
     Indication: PERSONALITY DISORDER
     Dosage: 10MG IN THE MORNING, 20MG IN THE NIGHT
     Dates: start: 20140106
  2. LAMOTRIGINE [Concomitant]
     Dosage: 300 MG, UNK
  3. ESCITALOPRAM OXALATE [Concomitant]
     Dosage: 20 MG, UNK
  4. RAVOTRIL [Concomitant]
     Dosage: 2 MG, UNK
  5. PROPRANOLOL HYDROCHLORIDE [Concomitant]
     Dosage: UNK

REACTIONS (4)
  - Movement disorder [Not Recovered/Not Resolved]
  - Feeling abnormal [Not Recovered/Not Resolved]
  - Lactose intolerance [Unknown]
  - Abdominal pain upper [Unknown]
